FAERS Safety Report 4996484-0 (Version None)
Quarter: 2006Q2

REPORT INFORMATION
  Report Type: 
  Country: None (occurrence: None)
  Receive Date: 20060505
  Receipt Date: 20060425
  Transmission Date: 20061013
  Serious: Yes (Life-Threatening, Hospitalization)
  Sender: FDA-Public Use
  Company Number: HQWYE393417MAR06

PATIENT
  Age: 79 Year
  Sex: Female

DRUGS (11)
  1. ETODOLAC [Suspect]
     Indication: ANALGESIC THERAPY
     Dosage: 200 MG 1X PER 1 DAY ORAL
     Route: 048
     Dates: start: 20031128, end: 20060121
  2. ALENDRONATE SODIUM [Suspect]
     Indication: OSTEOPOROSIS
     Dosage: 5 MG 1X PER 1 DAY ORAL
     Route: 048
  3. ASPIRIN [Suspect]
  4. AZULENE (AZULENE, ) [Suspect]
     Dosage: 2G 1X PER 1 DAY
  5. BENFOTIAMINE (BENFOTIAMINE, ) [Suspect]
     Indication: PERIPHERAL VASCULAR DISORDER
     Dosage: 0.4 G 1X PER 1 DAY
  6. BETHANECHOL CHLORIDE [Suspect]
     Dosage: 0.4 G 1X PER 1 DAY
  7. CLOTIAZEPAM (CLOTIAZEPAM, ) [Suspect]
     Indication: INSOMNIA
     Dosage: 5 MG 1X PER 1 DAY
  8. CYANOCOBALAMIN [Suspect]
     Indication: PERIPHERAL VASCULAR DISORDER
  9. MAGNESIUM CARBONATE (MAGNESIUM CARBONATE, ) [Suspect]
  10. MENATETRENONE (MENATETRENONE, ) [Suspect]
     Indication: HYPOKALAEMIA
     Dosage: 15 MG 1X PER 1 DAY ORAL
     Route: 048
  11. PYRIDOXINE HCL [Suspect]
     Indication: PERIPHERAL VASCULAR DISORDER

REACTIONS (5)
  - GASTROINTESTINAL HAEMORRHAGE [None]
  - HAEMATOCRIT DECREASED [None]
  - HAEMOGLOBIN DECREASED [None]
  - RED BLOOD CELL COUNT DECREASED [None]
  - SHOCK [None]
